FAERS Safety Report 8391960-5 (Version None)
Quarter: 2012Q2

REPORT INFORMATION
  Report Type: 
  Country: None (occurrence: None)
  Receive Date: 20120529
  Receipt Date: 20120521
  Transmission Date: 20120825
  Serious: Yes (Other)
  Sender: FDA-Public Use
  Company Number: US-GLAXOSMITHKLINE-B0804071A

PATIENT
  Age: 34 Year
  Sex: Male

DRUGS (5)
  1. ACAMPROSATE [Concomitant]
     Dosage: 666MG THREE TIMES PER DAY
  2. BUPROPION HCL [Suspect]
     Dosage: 150MG TWICE PER DAY
     Route: 065
  3. QUETIAPINE [Concomitant]
     Dosage: 100MG THREE TIMES PER DAY
  4. ZALEPLON [Concomitant]
     Dosage: 15MG AT NIGHT
  5. BUSPIRONE HCL [Concomitant]
     Dosage: 10MG THREE TIMES PER DAY

REACTIONS (4)
  - DELIRIUM [None]
  - HALLUCINATION, VISUAL [None]
  - WITHDRAWAL SYNDROME [None]
  - HALLUCINATION, AUDITORY [None]
